FAERS Safety Report 25762834 (Version 1)
Quarter: 2025Q3

REPORT INFORMATION
  Report Type: Spontaneous
  Country: US (occurrence: US)
  Receive Date: 20250904
  Receipt Date: 20250904
  Transmission Date: 20251021
  Serious: No
  Sender: BRACCO
  Company Number: US-BRACCO-2020US04793

PATIENT
  Age: 41 Year
  Sex: Female

DRUGS (1)
  1. AXUMIN [Suspect]
     Active Substance: FLUCICLOVINE F-18
     Indication: Positron emission tomography-magnetic resonance imaging
     Route: 042
     Dates: start: 20201120, end: 20201120

REACTIONS (1)
  - Off label use [Unknown]

NARRATIVE: CASE EVENT DATE: 20201120
